FAERS Safety Report 15849431 (Version 1)
Quarter: 2019Q1

REPORT INFORMATION
  Report Type: Spontaneous
  Country: US (occurrence: US)
  Receive Date: 20190121
  Receipt Date: 20190121
  Transmission Date: 20190417
  Serious: No
  Sender: FDA-Public Use
  Company Number: US-BIOGEN-2019BI00684006

PATIENT
  Sex: Female

DRUGS (2)
  1. TECFIDERA [Suspect]
     Active Substance: DIMETHYL FUMARATE
     Indication: MULTIPLE SCLEROSIS
     Route: 065
     Dates: start: 20150126, end: 20181130
  2. TECFIDERA [Suspect]
     Active Substance: DIMETHYL FUMARATE
     Route: 065
     Dates: start: 20190111

REACTIONS (6)
  - Vomiting [Recovered/Resolved]
  - Urticaria [Recovered/Resolved]
  - Asthenia [Unknown]
  - Pyrexia [Unknown]
  - Nausea [Recovered/Resolved]
  - Parkinson^s disease [Unknown]
